FAERS Safety Report 9029417 (Version 2)
Quarter: 2013Q1

REPORT INFORMATION
  Report Type: Spontaneous
  Country: US (occurrence: US)
  Receive Date: 20130125
  Receipt Date: 20130208
  Transmission Date: 20140127
  Serious: No
  Sender: FDA-Public Use
  Company Number: US-JNJFOC-20130112270

PATIENT
  Sex: Male
  Weight: 127.01 kg

DRUGS (2)
  1. NEOSPORIN [Suspect]
     Indication: ECZEMA
     Route: 061
  2. CORTIZONE 10 [Suspect]
     Indication: ECZEMA
     Route: 065

REACTIONS (3)
  - Wrong technique in drug usage process [Unknown]
  - Off label use [Unknown]
  - Therapeutic response unexpected [Unknown]
